FAERS Safety Report 25536452 (Version 2)
Quarter: 2025Q3

REPORT INFORMATION
  Report Type: Spontaneous
  Country: EU (occurrence: EU)
  Receive Date: 20250709
  Receipt Date: 20250716
  Transmission Date: 20251020
  Serious: Yes (Other)
  Sender: BRISTOL-MYERS SQUIBB COMPANY
  Company Number: EU-BRISTOL-MYERS SQUIBB COMPANY-2025-094684

PATIENT
  Age: 28 Year
  Sex: Female

DRUGS (16)
  1. THALIDOMIDE [Suspect]
     Active Substance: THALIDOMIDE
     Indication: Pinealoblastoma
     Route: 048
  2. THALIDOMIDE [Suspect]
     Active Substance: THALIDOMIDE
     Route: 048
  3. ETOPOSIDE [Suspect]
     Active Substance: ETOPOSIDE
     Indication: Pinealoblastoma
     Route: 048
  4. ETOPOSIDE [Suspect]
     Active Substance: ETOPOSIDE
     Route: 048
  5. CYCLOPHOSPHAMIDE [Suspect]
     Active Substance: CYCLOPHOSPHAMIDE
     Indication: Pinealoblastoma
     Route: 048
  6. CYCLOPHOSPHAMIDE [Suspect]
     Active Substance: CYCLOPHOSPHAMIDE
     Route: 048
  7. FENOFIBRATE [Suspect]
     Active Substance: FENOFIBRATE
     Indication: Pinealoblastoma
     Route: 048
  8. FENOFIBRATE [Suspect]
     Active Substance: FENOFIBRATE
     Route: 048
  9. CELECOXIB [Suspect]
     Active Substance: CELECOXIB
     Indication: Pinealoblastoma
     Route: 048
  10. CELECOXIB [Suspect]
     Active Substance: CELECOXIB
     Route: 048
  11. BEVACIZUMAB [Suspect]
     Active Substance: BEVACIZUMAB
     Indication: Pinealoblastoma
     Route: 042
  12. BEVACIZUMAB [Suspect]
     Active Substance: BEVACIZUMAB
     Route: 042
  13. BEVACIZUMAB [Suspect]
     Active Substance: BEVACIZUMAB
     Route: 042
  14. CYTARABINE [Suspect]
     Active Substance: CYTARABINE
     Indication: Pinealoblastoma
  15. SULFAMETHOXAZOLE\TRIMETHOPRIM [Concomitant]
     Active Substance: SULFAMETHOXAZOLE\TRIMETHOPRIM
     Indication: Infection prophylaxis
  16. TEMOZOLOMIDE [Concomitant]
     Active Substance: TEMOZOLOMIDE

REACTIONS (4)
  - Neutropenia [Unknown]
  - Meningitis bacterial [Unknown]
  - Neurotoxicity [Unknown]
  - Off label use [Unknown]
